FAERS Safety Report 9580073 (Version 1)
Quarter: 2013Q3

REPORT INFORMATION
  Report Type: Spontaneous
  Country: US (occurrence: None)
  Receive Date: 20130916
  Receipt Date: 20130916
  Transmission Date: 20140515
  Serious: Yes (Hospitalization)
  Sender: FDA-Public Use
  Company Number: JPI-P-028979

PATIENT
  Age: 22 Year
  Sex: Female
  Weight: 53.07 kg

DRUGS (2)
  1. XYREM (500 MILLIGRAM/MILLILITERS, SOLUTION) (SODIUM OXYBATE) [Suspect]
     Indication: CATAPLEXY
     Route: 048
     Dates: start: 20121129, end: 201212
  2. XYREM (500 MILLIGRAM/MILLILITERS, SOLUTION) (SODIUM OXYBATE) [Suspect]
     Indication: SOMNOLENCE
     Route: 048
     Dates: start: 20121129, end: 201212

REACTIONS (17)
  - Acute psychosis [None]
  - Medication error [None]
  - Body temperature decreased [None]
  - Bruxism [None]
  - Energy increased [None]
  - Dry skin [None]
  - Hypervigilance [None]
  - Psychomotor hyperactivity [None]
  - Tremor [None]
  - Chills [None]
  - Feeling jittery [None]
  - Weight decreased [None]
  - Feeling hot [None]
  - Diarrhoea [None]
  - Vomiting [None]
  - Feeling abnormal [None]
  - Decreased appetite [None]
